FAERS Safety Report 17257546 (Version 2)
Quarter: 2020Q1

REPORT INFORMATION
  Report Type: Spontaneous
  Country: US (occurrence: US)
  Receive Date: 20200110
  Receipt Date: 20200227
  Transmission Date: 20200409
  Serious: No
  Sender: FDA-Public Use
  Company Number: US-PFIZER INC-2019370608

PATIENT
  Age: 63 Year
  Sex: Female
  Weight: 54.43 kg

DRUGS (2)
  1. RELPAX [Suspect]
     Active Substance: ELETRIPTAN HYDROBROMIDE
     Indication: MIGRAINE
     Dosage: 1 DF, AS NEEDED (MAY TAKE 2ND TABLET IF THE 1ST DOSE HASN^T WORKED AFTER 2 HOURS)
     Route: 048
  2. RELPAX [Suspect]
     Active Substance: ELETRIPTAN HYDROBROMIDE
     Indication: HEADACHE
     Dosage: 40 MG, AS NEEDED
     Route: 048

REACTIONS (1)
  - Product dose omission [Unknown]
